FAERS Safety Report 6971730-2 (Version None)
Quarter: 2010Q3

REPORT INFORMATION
  Report Type: 
  Country: None (occurrence: None)
  Receive Date: 20100903
  Receipt Date: 20100827
  Transmission Date: 20110219
  Serious: Yes (Hospitalization)
  Sender: FDA-Public Use
  Company Number: 2010MA002154

PATIENT
  Age: 94 Year
  Sex: Female

DRUGS (8)
  1. DICLOFENAC SODIUM [Suspect]
     Indication: FRACTURE
     Dosage: 50 MG;TID;PO
     Route: 048
     Dates: start: 20100727, end: 20100810
  2. ASPIRIN [Suspect]
     Indication: ISCHAEMIC STROKE
     Dosage: 75 MG;QD;PO
     Route: 048
     Dates: start: 20080507, end: 20100810
  3. ADCAL-D3 [Concomitant]
  4. LANSOPRAZOLE [Concomitant]
  5. NULYTELY [Concomitant]
  6. FUROSEMIDE [Concomitant]
  7. TRIMETHOPRIM [Concomitant]
  8. ACETAMINOPHEN [Concomitant]

REACTIONS (3)
  - DUODENITIS [None]
  - GASTRIC ULCER [None]
  - GASTROINTESTINAL HAEMORRHAGE [None]
